FAERS Safety Report 14080277 (Version 1)
Quarter: 2017Q4

REPORT INFORMATION
  Report Type: Spontaneous
  Country: US (occurrence: US)
  Receive Date: 20171012
  Receipt Date: 20171012
  Transmission Date: 20180321
  Serious: Yes (Hospitalization, Other)
  Sender: FDA-Public Use
  Company Number: US-SA-2017SA196849

PATIENT
  Age: 70 Year
  Sex: Male

DRUGS (20)
  1. ALIROCUMAB PREFILLED PEN [Suspect]
     Active Substance: ALIROCUMAB
     Indication: TYPE IIA HYPERLIPIDAEMIA
     Dates: start: 2017
  2. AMPYRA [Concomitant]
     Active Substance: DALFAMPRIDINE
  3. ASPIRIN (E.C.) [Concomitant]
     Active Substance: ASPIRIN
     Dosage: STRENGTH: 325 MG
  4. PRALUENT [Suspect]
     Active Substance: ALIROCUMAB
     Indication: TYPE IIA HYPERLIPIDAEMIA
     Route: 058
     Dates: start: 2017
  5. MAGNESIUM [Concomitant]
     Active Substance: MAGNESIUM
  6. NORCO [Concomitant]
     Active Substance: ACETAMINOPHEN\HYDROCODONE BITARTRATE
  7. POTASSIUM CHLORIDE. [Concomitant]
     Active Substance: POTASSIUM CHLORIDE
  8. GABAPENTIN. [Concomitant]
     Active Substance: GABAPENTIN
  9. FUROSEMIDE. [Concomitant]
     Active Substance: FUROSEMIDE
  10. AMITIZA [Concomitant]
     Active Substance: LUBIPROSTONE
  11. METOPROLOL TARTRATE. [Concomitant]
     Active Substance: METOPROLOL TARTRATE
  12. RAPAFLO [Concomitant]
     Active Substance: SILODOSIN
  13. FINASTERIDE. [Concomitant]
     Active Substance: FINASTERIDE
  14. TRAZODONE [Concomitant]
     Active Substance: TRAZODONE HYDROCHLORIDE
  15. ALEVE [Concomitant]
     Active Substance: NAPROXEN SODIUM
  16. BETASERON [Concomitant]
     Active Substance: INTERFERON BETA-1B
  17. VITAMIN D3 [Concomitant]
     Active Substance: CHOLECALCIFEROL
  18. ESCITALOPRAM OXALATE. [Concomitant]
     Active Substance: ESCITALOPRAM OXALATE
  19. ENALAPRIL [Concomitant]
     Active Substance: ENALAPRIL
  20. HYDROCODONE W/ACETAMINOPHEN [Concomitant]
     Active Substance: ACETAMINOPHEN\HYDROCODONE BITARTRATE

REACTIONS (2)
  - Apparent death [Unknown]
  - Hospitalisation [Unknown]

NARRATIVE: CASE EVENT DATE: 20170913
